FAERS Safety Report 10431229 (Version 1)
Quarter: 2014Q3

REPORT INFORMATION
  Report Type: Spontaneous
  Country: US (occurrence: US)
  Receive Date: 20140904
  Receipt Date: 20140904
  Transmission Date: 20150326
  Serious: Yes (Other)
  Sender: FDA-Public Use
  Company Number: US-009507513-1409USA000410

PATIENT
  Age: 11 Year
  Sex: Male
  Weight: 47.17 kg

DRUGS (1)
  1. DULERA [Suspect]
     Active Substance: FORMOTEROL FUMARATE DIHYDRATE\MOMETASONE FUROATE
     Indication: ASTHMA
     Dosage: 2 PUFFS, BID
     Route: 055

REACTIONS (3)
  - Cushing^s syndrome [Not Recovered/Not Resolved]
  - Product quality issue [Unknown]
  - Product measured potency issue [Unknown]

NARRATIVE: CASE EVENT DATE: 20130606
